FAERS Safety Report 4377740-6 (Version None)
Quarter: 2004Q2

REPORT INFORMATION
  Report Type: 
  Country: None (occurrence: None)
  Receive Date: 20040608
  Receipt Date: 20040524
  Transmission Date: 20050107
  Serious: Yes (Hospitalization)
  Sender: FDA-Public Use
  Company Number: 2004-0007092

PATIENT
  Age: 44 Year
  Sex: Male
  Weight: 89 kg

DRUGS (8)
  1. VIREAD [Suspect]
     Indication: HIV INFECTION
     Dosage: 300 MG, 1 IN 1 D, ORAL
     Route: 048
     Dates: start: 20030703
  2. KALETRA [Concomitant]
  3. VIDEX [Concomitant]
  4. ANDRIOL (TESTOSTERONE UNDECANOATE) [Concomitant]
  5. METFORMIN HCL [Concomitant]
  6. VITAMIN C (ASCORBIC ACID) [Concomitant]
  7. GLUTAMIN (GLUTAMIC ACID) [Concomitant]
  8. MAGNESIUM (MAGNESIUM) [Concomitant]

REACTIONS (2)
  - CONDITION AGGRAVATED [None]
  - EPILEPSY [None]
